FAERS Safety Report 13945575 (Version 1)
Quarter: 2017Q3

REPORT INFORMATION
  Report Type: Spontaneous
  Country: CN (occurrence: CN)
  Receive Date: 20170907
  Receipt Date: 20170907
  Transmission Date: 20171128
  Serious: Yes (Hospitalization)
  Sender: FDA-Public Use
  Company Number: CN-PFIZER INC-2017382945

PATIENT
  Age: 56 Year
  Sex: Female

DRUGS (2)
  1. LIPITOR [Suspect]
     Active Substance: ATORVASTATIN CALCIUM
     Indication: CEREBROVASCULAR STENOSIS
     Dosage: UNK
     Route: 048
     Dates: start: 2013, end: 201606
  2. LIPITOR [Suspect]
     Active Substance: ATORVASTATIN CALCIUM
     Dosage: UNK
     Route: 048
     Dates: start: 201606, end: 20170818

REACTIONS (3)
  - Cerebral infarction [Recovering/Resolving]
  - Drug ineffective [Unknown]
  - Suspected counterfeit product [Recovering/Resolving]

NARRATIVE: CASE EVENT DATE: 201606
